FAERS Safety Report 8423671 (Version 3)
Quarter: 2014Q2

REPORT INFORMATION
  Report Type: Spontaneous
  Country: US (occurrence: US)
  Receive Date: 20120224
  Receipt Date: 20140402
  Transmission Date: 20141212
  Serious: No
  Sender: FDA-Public Use
  Company Number: US-PFIZER INC-2012045760

PATIENT
  Age: 63 Year
  Sex: Male

DRUGS (2)
  1. XALKORI [Suspect]
     Indication: TRACHEAL CANCER
     Dosage: 250 MG, UNK
     Dates: start: 20120209
  2. XALKORI [Suspect]
     Dosage: 250 MG, 2X/DAY
     Dates: start: 20130327

REACTIONS (6)
  - Off label use [Unknown]
  - Vision blurred [Unknown]
  - Dysgeusia [Unknown]
  - Decreased appetite [Unknown]
  - Back pain [Unknown]
  - Dizziness [Unknown]
